APPROVED DRUG PRODUCT: SODIUM IODIDE I 123
Active Ingredient: SODIUM IODIDE I-123
Strength: 200uCi
Dosage Form/Route: CAPSULE;ORAL
Application: N017630 | Product #003
Applicant: GE HEALTHCARE
Approved: Jan 8, 1993 | RLD: No | RS: No | Type: DISCN